FAERS Safety Report 19628560 (Version 2)
Quarter: 2021Q4

REPORT INFORMATION
  Report Type: Spontaneous
  Country: PL (occurrence: PL)
  Receive Date: 20210729
  Receipt Date: 20211001
  Transmission Date: 20220303
  Serious: Yes (Other)
  Sender: FDA-Public Use
  Company Number: PL-BAXTER-2021BAX022424

PATIENT
  Age: 57 Year
  Sex: Female

DRUGS (1)
  1. CYCLOPHOSPHAMIDE [Suspect]
     Active Substance: CYCLOPHOSPHAMIDE
     Indication: Breast cancer
     Route: 065

REACTIONS (4)
  - Non-small cell lung cancer [Unknown]
  - Lung disorder [Unknown]
  - Carpal tunnel syndrome [Unknown]
  - Polyneuropathy [Unknown]
